FAERS Safety Report 5514630-7 (Version None)
Quarter: 2007Q4

REPORT INFORMATION
  Report Type: 
  Country: None (occurrence: None)
  Receive Date: 20071113
  Receipt Date: 20071108
  Transmission Date: 20080405
  Serious: Yes (Other)
  Sender: FDA-Public Use
  Company Number: CA-ASTRAZENECA-2007UW26026

PATIENT
  Age: 75 Year
  Sex: Female

DRUGS (21)
  1. XYLOCAINE [Suspect]
     Dosage: 1 %
     Route: 047
  2. XYLOCAINE [Suspect]
     Dosage: 2 %
     Route: 047
  3. ALPHAGAN [Suspect]
     Route: 047
  4. CYCLOPENTOLATE HYDROCHLORIDE [Suspect]
     Route: 047
  5. VISCIN BLUE [Suspect]
     Route: 047
  6. KETOROLAC [Suspect]
     Route: 047
  7. MIOCHOL [Suspect]
     Route: 047
  8. PHENYLEPHRINE HCT [Suspect]
     Dosage: 2.5 %
     Route: 047
  9. PREDNISOLONE [Suspect]
     Route: 047
  10. TETRACAINE [Suspect]
     Route: 047
  11. TOBRADEX [Suspect]
     Route: 047
  12. TROPICAMIDE [Suspect]
     Route: 047
  13. VANCOMYCIN [Suspect]
     Route: 047
  14. ZYMAR [Suspect]
     Route: 047
  15. CRESTOR [Concomitant]
  16. APO-HYDRO [Concomitant]
  17. AVAPRO [Concomitant]
  18. EZETROL [Concomitant]
  19. NORVASC [Concomitant]
  20. PROPRANOLOL [Concomitant]
  21. XALATAN [Concomitant]

REACTIONS (2)
  - EYE DISORDER [None]
  - INFLAMMATION [None]
